FAERS Safety Report 19499830 (Version 1)
Quarter: 2021Q3

REPORT INFORMATION
  Report Type: Spontaneous
  Country: US (occurrence: US)
  Receive Date: 20210706
  Receipt Date: 20210706
  Transmission Date: 20211014
  Serious: Yes (Hospitalization, Other)
  Sender: FDA-Public Use
  Company Number: US-TAKEDA-2021TUS040833

PATIENT
  Sex: Female

DRUGS (3)
  1. NOVOSEVEN [Concomitant]
     Active Substance: COAGULATION FACTOR VIIA RECOMBINANT HUMAN
     Indication: PRODUCT USED FOR UNKNOWN INDICATION
     Dosage: UNK
     Route: 065
  2. VONVENDI [Suspect]
     Active Substance: VON WILLEBRAND FACTOR (RECOMBINANT)
     Indication: PROPHYLAXIS
     Dosage: 3900 INTERNATIONAL UNIT, ON DEMAND
     Route: 042
  3. VONVENDI [Suspect]
     Active Substance: VON WILLEBRAND FACTOR (RECOMBINANT)
     Indication: VON WILLEBRAND^S DISEASE
     Dosage: 2600 INTERNATIONAL UNIT, 3/WEEK
     Route: 042
     Dates: start: 20200131

REACTIONS (4)
  - Gastrointestinal haemorrhage [Unknown]
  - Ear haemorrhage [Unknown]
  - Haemarthrosis [Unknown]
  - Joint instability [Unknown]

NARRATIVE: CASE EVENT DATE: 2020
